FAERS Safety Report 6008609-9 (Version None)
Quarter: 2008Q4

REPORT INFORMATION
  Report Type: 
  Country: None (occurrence: None)
  Receive Date: 20081217
  Receipt Date: 20080908
  Transmission Date: 20090506
  Serious: No
  Sender: FDA-Public Use
  Company Number: US-AMGEN-KDL306400

PATIENT
  Sex: Female

DRUGS (1)
  1. ARANESP [Suspect]
     Indication: RENAL FAILURE CHRONIC

REACTIONS (2)
  - BLOOD PRESSURE DECREASED [None]
  - SKIN WRINKLING [None]
